FAERS Safety Report 8101672 (Version 3)
Quarter: 2013Q1

REPORT INFORMATION
  Report Type: Spontaneous
  Country: US (occurrence: None)
  Receive Date: 20110812
  Receipt Date: 20130301
  Transmission Date: 20140127
  Serious: Yes (Other)
  Sender: FDA-Public Use
  Company Number: 998443

PATIENT
  Age: 70 Year
  Sex: Female
  Weight: 71.67 kg

DRUGS (1)
  1. CIPROFLOXACIN EXTENDED-RELEASE [Suspect]
     Dosage: 400 MG, X1, INTRAVENOUS DRIP
     Route: 041

REACTIONS (2)
  - INJECTION SITE STREAKING [None]
  - INJECTION SITE PRURITUS [None]
